FAERS Safety Report 21525964 (Version 2)
Quarter: 2022Q4

REPORT INFORMATION
  Report Type: Spontaneous
  Country: JP (occurrence: JP)
  Receive Date: 20221031
  Receipt Date: 20221104
  Transmission Date: 20230113
  Serious: Yes (Death, Other)
  Sender: FDA-Public Use
  Company Number: JP-STRIDES ARCOLAB LIMITED-2022SP014197

PATIENT
  Age: 60 Year
  Sex: Male

DRUGS (6)
  1. ETOPOSIDE [Suspect]
     Active Substance: ETOPOSIDE
     Indication: Small cell lung cancer
     Dosage: 100 MILLIGRAM/SQ. METER ON DAYS 1?3, CYCLICAL, 2 CYCES
     Route: 065
  2. CARBOPLATIN [Suspect]
     Active Substance: CARBOPLATIN
     Indication: Small cell lung cancer
     Dosage: UNK, CYCLICAL, (AUC 5) ON DAY 1
     Route: 065
  3. CARBOPLATIN [Suspect]
     Active Substance: CARBOPLATIN
     Indication: Non-small cell lung cancer
     Dosage: UNK CYCLICAL (AUC 4.5 ON DAY 1) NSCLC REGIMEN (2 CYCLES)
     Route: 065
  4. ATEZOLIZUMAB [Suspect]
     Active Substance: ATEZOLIZUMAB
     Indication: Small cell lung cancer
     Dosage: 1200 MILLIGRAM ON DAY 1 (IN ADDITION TO CARBOPLATIN PLUS ETOPOSIDE IN THE SECOND CYCLE)
     Route: 065
  5. PACLITAXEL [Suspect]
     Active Substance: PACLITAXEL
     Indication: Non-small cell lung cancer
     Dosage: 100 MILLIGRAM/SQ. METER CYCLICAL ON DAYS 1, 8 AND 15 (NAB) (2 CYCLES)
     Route: 065
  6. PEMBROLIZUMAB [Suspect]
     Active Substance: PEMBROLIZUMAB
     Indication: Non-small cell lung cancer
     Dosage: 200 MILLIGRAM, CYCLICAL (ON DAY 1) (2 CYCLES)
     Route: 065

REACTIONS (3)
  - Pneumonia bacterial [Fatal]
  - Therapy non-responder [Unknown]
  - Off label use [Unknown]
